FAERS Safety Report 9444684 (Version 1)
Quarter: 2013Q3

REPORT INFORMATION
  Report Type: Report from Study
  Country: CN (occurrence: CN)
  Receive Date: 20130807
  Receipt Date: 20130807
  Transmission Date: 20140515
  Serious: Yes (Other)
  Sender: FDA-Public Use
  Company Number: CN-ROCHE-1256845

PATIENT
  Sex: Male
  Weight: 75 kg

DRUGS (4)
  1. CELLCEPT [Suspect]
     Indication: RENAL TRANSPLANT
     Route: 048
     Dates: start: 20050921
  2. CELLCEPT [Suspect]
     Route: 048
  3. PROGRAF [Concomitant]
     Indication: RENAL TRANSPLANT
     Route: 048
     Dates: start: 20050921
  4. MEDROL [Concomitant]
     Indication: RENAL TRANSPLANT
     Route: 048
     Dates: start: 20050921

REACTIONS (7)
  - Gout [Unknown]
  - Renal disorder [Unknown]
  - Glomerular vascular disorder [Unknown]
  - Proteinuria [Not Recovered/Not Resolved]
  - Blood creatinine increased [Recovering/Resolving]
  - Immunosuppressant drug level increased [Unknown]
  - Blood glucose increased [Unknown]
